FAERS Safety Report 7944659-0 (Version None)
Quarter: 2011Q4

REPORT INFORMATION
  Report Type: 
  Country: None (occurrence: None)
  Receive Date: 20111129
  Receipt Date: 20111117
  Transmission Date: 20120403
  Serious: Yes (Other)
  Sender: FDA-Public Use
  Company Number: JP-JNJFOC-20110902684

PATIENT
  Sex: Female

DRUGS (5)
  1. REMIFENTANIL HYDROCHLORIDE [Suspect]
     Indication: GENERAL ANAESTHESIA
     Route: 042
     Dates: start: 20111025, end: 20111025
  2. MORPHINE HYDROCHLORIDE [Concomitant]
     Route: 065
  3. FENTANYL [Suspect]
     Indication: PAIN
     Route: 062
     Dates: start: 20050101, end: 20111027
  4. METOCLOPRAMIDE [Concomitant]
     Indication: UTERINE CONTRACTIONS DURING PREGNANCY
     Route: 048
  5. FENTANYL CITRATE [Suspect]
     Indication: GENERAL ANAESTHESIA
     Route: 042
     Dates: start: 20111025, end: 20111025

REACTIONS (2)
  - PREMATURE LABOUR [None]
  - MATERNAL EXPOSURE DURING PREGNANCY [None]
